FAERS Safety Report 18220034 (Version 4)
Quarter: 2021Q1

REPORT INFORMATION
  Report Type: Report from Study
  Country: None (occurrence: US)
  Receive Date: 20200902
  Receipt Date: 20210208
  Transmission Date: 20210419
  Serious: Yes (Other)
  Sender: FDA-Public Use
  Company Number: US-ABBVIE-20K-163-3416021-00

PATIENT
  Age: 52 Year
  Sex: Female

DRUGS (1)
  1. RINVOQ [Suspect]
     Active Substance: UPADACITINIB
     Indication: RHEUMATOID ARTHRITIS
     Route: 048

REACTIONS (12)
  - Joint noise [Unknown]
  - Pain [Unknown]
  - Migraine [Unknown]
  - Fatigue [Unknown]
  - Fibromyalgia [Unknown]
  - Drug ineffective [Unknown]
  - Asthenia [Unknown]
  - Rheumatoid arthritis [Unknown]
  - Hysterectomy [Unknown]
  - Arthralgia [Unknown]
  - Low density lipoprotein increased [Unknown]
  - Blood oestrogen decreased [Unknown]

NARRATIVE: CASE EVENT DATE: 202007
